FAERS Safety Report 8848731 (Version 1)
Quarter: 2012Q4

REPORT INFORMATION
  Report Type: 
  Country: US (occurrence: US)
  Receive Date: 20121018
  Receipt Date: 20121018
  Transmission Date: 20130627
  Serious: No
  Sender: FDA-Public Use
  Company Number: US-PFIZER INC-2012258490

PATIENT
  Age: 46 Year
  Sex: Female
  Weight: 58.96 kg

DRUGS (9)
  1. NEURONTIN [Suspect]
     Indication: NEUROPATHY PERIPHERAL
     Dosage: 800 mg, 6x/day
     Route: 048
     Dates: end: 201210
  2. NEURONTIN [Suspect]
     Indication: PAIN IN EXTREMITY
  3. TRAMADOL [Concomitant]
     Indication: PAIN
     Dosage: UNK, as needed
  4. OXYCODONE [Concomitant]
     Indication: PAIN
     Dosage: UNK, as needed
  5. NAPROXEN [Concomitant]
     Dosage: UNK
  6. METOPROLOL [Concomitant]
     Dosage: UNK
  7. LEVOTHYROXINE [Concomitant]
     Dosage: UNK
  8. SPIRONOLACTONE [Concomitant]
     Dosage: UNK
  9. NORTRIPTYLINE [Concomitant]
     Dosage: UNK

REACTIONS (2)
  - Pain in extremity [Not Recovered/Not Resolved]
  - Incorrect dose administered [Unknown]
